FAERS Safety Report 4823027-4 (Version None)
Quarter: 2005Q4

REPORT INFORMATION
  Report Type: 
  Country: None (occurrence: None)
  Receive Date: 20051107
  Receipt Date: 20051107
  Transmission Date: 20060501
  Serious: Yes (Life-Threatening, Other)
  Sender: FDA-Public Use
  Company Number: None

PATIENT
  Age: 58 Year
  Sex: Female
  Weight: 72.5755 kg

DRUGS (2)
  1. LEVAQUIN [Suspect]
     Indication: RHINITIS
     Dosage: 1 TABLET    1 ONLY    PO
     Route: 048
     Dates: start: 20051102, end: 20051102
  2. NOVAHISTINE DH   CODIENE  10 MG   LOT L006D5A FROM HOSPITAL [Suspect]
     Indication: RHINITIS
     Dosage: 1 TSP    1ONLY    PO
     Route: 048
     Dates: start: 20051102, end: 20051102

REACTIONS (4)
  - COUGH [None]
  - DYSPNOEA [None]
  - PRURITUS [None]
  - THROAT TIGHTNESS [None]
